FAERS Safety Report 6718541-0 (Version None)
Quarter: 2010Q2

REPORT INFORMATION
  Report Type: 
  Country: None (occurrence: None)
  Receive Date: 20100510
  Receipt Date: 20100505
  Transmission Date: 20101027
  Serious: Yes (Hospitalization)
  Sender: FDA-Public Use
  Company Number: US-GILEAD-2010-0028540

PATIENT
  Sex: Female
  Weight: 77.3 kg

DRUGS (17)
  1. LETAIRIS [Suspect]
     Indication: PULMONARY ARTERIAL HYPERTENSION
     Route: 048
     Dates: start: 20100325
  2. REVATIO [Concomitant]
  3. COUMADIN [Concomitant]
  4. ASPIRIN [Concomitant]
  5. SPIRONOLACT [Concomitant]
  6. LASIX [Concomitant]
  7. LISINOPRIL [Concomitant]
  8. TOPROL-XL [Concomitant]
  9. SIMVASTATIN [Concomitant]
  10. ACIDOPHILUS [Concomitant]
  11. AMOXICILLIN [Concomitant]
  12. SYNTHROID [Concomitant]
  13. KLOR-CON [Concomitant]
  14. FISH OIL [Concomitant]
  15. OSCAL [Concomitant]
  16. VITAMIN D [Concomitant]
  17. MULTIVITAMIN FOR HER [Concomitant]

REACTIONS (1)
  - RENAL FAILURE [None]
